FAERS Safety Report 7708759-2 (Version None)
Quarter: 2011Q3

REPORT INFORMATION
  Report Type: 
  Country: None (occurrence: None)
  Receive Date: 20110825
  Receipt Date: 20110825
  Transmission Date: 20111222
  Serious: No
  Sender: FDA-Public Use
  Company Number: None

PATIENT
  Age: 88 Year
  Sex: Male
  Weight: 101.6 kg

DRUGS (1)
  1. AVASTIN [Suspect]
     Indication: MACULAR DEGENERATION
     Dosage: 1.25MG
     Route: 031

REACTIONS (5)
  - EYE PAIN [None]
  - EYE INFLAMMATION [None]
  - VISUAL ACUITY REDUCED [None]
  - INJECTION SITE REACTION [None]
  - INTRAOCULAR PRESSURE INCREASED [None]
